FAERS Safety Report 21721427 (Version 2)
Quarter: 2022Q4

REPORT INFORMATION
  Report Type: Report from Study
  Country: NZ (occurrence: NZ)
  Receive Date: 20221213
  Receipt Date: 20221216
  Transmission Date: 20230112
  Serious: Yes (Other)
  Sender: FDA-Public Use
  Company Number: NZ-GLAXOSMITHKLINE-NZ2022APC182072

PATIENT

DRUGS (2)
  1. MEPOLIZUMAB [Suspect]
     Active Substance: MEPOLIZUMAB
     Indication: Asthma
     Dosage: 100 MG, Z (EVERY 28 DAYS)
     Dates: start: 20220816
  2. PREDNISONE [Suspect]
     Active Substance: PREDNISONE
     Indication: Product used for unknown indication
     Dosage: 16 MG
     Dates: start: 202204

REACTIONS (11)
  - Haemorrhage [Unknown]
  - Adrenal insufficiency [Unknown]
  - Skin laceration [Unknown]
  - Injection site pain [Unknown]
  - Contusion [Unknown]
  - Heart rate increased [Unknown]
  - Urinary tract infection [Unknown]
  - Asthenia [Unknown]
  - Decreased activity [Unknown]
  - Incorrect dose administered [Unknown]
  - Wrong technique in product usage process [Unknown]
